FAERS Safety Report 5924291-0 (Version None)
Quarter: 2008Q4

REPORT INFORMATION
  Report Type: 
  Country: None (occurrence: None)
  Receive Date: 20081020
  Receipt Date: 20081010
  Transmission Date: 20090506
  Serious: Yes (Hospitalization)
  Sender: FDA-Public Use
  Company Number: AU-ELI_LILLY_AND_COMPANY-AU200806000004

PATIENT
  Sex: Male

DRUGS (9)
  1. BYETTA [Suspect]
     Indication: DIABETES MELLITUS
     Dosage: 5 UG, 2/D
     Route: 058
     Dates: start: 20070928, end: 20080201
  2. BYETTA [Suspect]
     Dosage: 10 UG, 2/D BEFORE FOOD.
     Route: 058
     Dates: start: 20080522
  3. CARTIA XT [Concomitant]
     Dosage: 100 MG, EACH MORNING WITH FOOD.
     Route: 048
  4. COVERSYL [Concomitant]
     Dosage: 5 MG, EACH MORNING BEFORE FOOD
     Route: 048
  5. CRESTOR [Concomitant]
     Dosage: 10 MG, EACH MORNING BEFORE FOOD
     Route: 048
  6. DIABEX [Concomitant]
     Dosage: 1000 MG 1+2 TWICE DAILY BEFORE FOOD
     Route: 048
  7. MICARDIS [Concomitant]
     Dosage: 80 MG, EACH MORNING BEFORE FOOD
     Route: 048
  8. NEXIUM [Concomitant]
     Dosage: 40 MG AT NIGHT AFTER FOOD
     Route: 048
  9. NOVOLOG MIX 70/30 [Concomitant]
     Dosage: 100 IU (30IU - 70IU)/ML AS PRESCRIBED
     Route: 065

REACTIONS (2)
  - DIABETIC FOOT INFECTION [None]
  - LIMB INJURY [None]
